FAERS Safety Report 17013509 (Version 3)
Quarter: 2020Q3

REPORT INFORMATION
  Report Type: Report from Study
  Country: BR (occurrence: BR)
  Receive Date: 20191110
  Receipt Date: 20200912
  Transmission Date: 20201102
  Serious: Yes (Other)
  Sender: FDA-Public Use
  Company Number: PHHY2019BR201429

PATIENT
  Age: 61 Year
  Sex: Female

DRUGS (5)
  1. XGEVA [Concomitant]
     Active Substance: DENOSUMAB
     Indication: PRODUCT USED FOR UNKNOWN INDICATION
     Dosage: UNK UNK, QMO
     Route: 065
  2. KISQALI [Suspect]
     Active Substance: RIBOCICLIB
     Indication: METASTASES TO BREAST
     Dosage: 3 DF, AT LUNCH
     Route: 065
     Dates: start: 20190807
  3. KISQALI [Suspect]
     Active Substance: RIBOCICLIB
     Dosage: UNK
     Route: 065
     Dates: start: 20190812
  4. LETROZOLE. [Suspect]
     Active Substance: LETROZOLE
     Dosage: UNK
     Route: 065
     Dates: start: 20190807
  5. LETROZOLE. [Suspect]
     Active Substance: LETROZOLE
     Indication: METASTASES TO BREAST
     Dosage: 1 DF, IN THE MORNING
     Route: 065

REACTIONS (22)
  - Depressed mood [Unknown]
  - Head discomfort [Recovered/Resolved]
  - Skin exfoliation [Not Recovered/Not Resolved]
  - Abdominal discomfort [Not Recovered/Not Resolved]
  - Fatigue [Not Recovered/Not Resolved]
  - Pain [Unknown]
  - Anxiety [Not Recovered/Not Resolved]
  - Weight increased [Not Recovered/Not Resolved]
  - Arthralgia [Recovered/Resolved]
  - Madarosis [Not Recovered/Not Resolved]
  - Skin depigmentation [Recovering/Resolving]
  - Illness [Not Recovered/Not Resolved]
  - Alopecia [Not Recovered/Not Resolved]
  - Pruritus [Not Recovered/Not Resolved]
  - Vomiting [Recovering/Resolving]
  - Hypertension [Recovered/Resolved]
  - Swelling face [Recovered/Resolved]
  - Headache [Recovered/Resolved]
  - Dry skin [Not Recovered/Not Resolved]
  - Peripheral swelling [Recovering/Resolving]
  - Muscular weakness [Not Recovered/Not Resolved]
  - Nausea [Recovering/Resolving]

NARRATIVE: CASE EVENT DATE: 201908
